FAERS Safety Report 9226042 (Version 1)
Quarter: 2013Q2

REPORT INFORMATION
  Report Type: Spontaneous
  Country: US (occurrence: US)
  Receive Date: 20130411
  Receipt Date: 20130411
  Transmission Date: 20140414
  Serious: Yes (Other)
  Sender: FDA-Public Use
  Company Number: US-AMGEN-USASP2013024274

PATIENT
  Age: 75 Year
  Sex: Female

DRUGS (3)
  1. PROLIA [Suspect]
     Indication: OSTEOPOROSIS POSTMENOPAUSAL
     Dosage: 60 MG, Q6MO
     Dates: start: 20121204
  2. DILANTIN                           /00017401/ [Concomitant]
  3. PLAVIX [Concomitant]

REACTIONS (6)
  - Dyspnoea [Unknown]
  - Pharyngeal oedema [Unknown]
  - Pruritus [Unknown]
  - Type I hypersensitivity [Unknown]
  - Erythema [Unknown]
  - Urticaria [Recovered/Resolved]
